FAERS Safety Report 4966633-9 (Version None)
Quarter: 2006Q1

REPORT INFORMATION
  Report Type: 
  Country: None (occurrence: None)
  Receive Date: 20060201
  Receipt Date: 20051212
  Transmission Date: 20060701
  Serious: No
  Sender: FDA-Public Use
  Company Number: 2005PV005769

PATIENT
  Age: 42 Year
  Sex: Male
  Weight: 86.1834 kg

DRUGS (7)
  1. BYETTA [Suspect]
     Indication: DIABETES MELLITUS NON-INSULIN-DEPENDENT
     Dosage: SEE IMAGE, SC
     Route: 058
     Dates: start: 20051030, end: 20051129
  2. BYETTA [Suspect]
     Indication: DIABETES MELLITUS NON-INSULIN-DEPENDENT
     Dosage: SEE IMAGE, SC
     Route: 058
     Dates: start: 20051130
  3. AVANDAMET [Concomitant]
  4. AMARYL [Concomitant]
  5. CRESTOR [Concomitant]
  6. TRICOR [Concomitant]
  7. ASPIRIN [Concomitant]

REACTIONS (1)
  - INJECTION SITE HAEMORRHAGE [None]
